FAERS Safety Report 5471087-2 (Version None)
Quarter: 2007Q3

REPORT INFORMATION
  Report Type: 
  Country: None (occurrence: None)
  Receive Date: 20070928
  Receipt Date: 20070925
  Transmission Date: 20080115
  Serious: Yes (Life-Threatening)
  Sender: FDA-Public Use
  Company Number: JP-ASTRAZENECA-2007AP06048

PATIENT
  Age: 77 Year
  Sex: Female

DRUGS (3)
  1. DIPRIVAN [Suspect]
     Route: 042
     Dates: start: 20070904, end: 20070904
  2. ATROPINE [Concomitant]
     Route: 042
     Dates: start: 20070904, end: 20070904
  3. MUSCULAX [Concomitant]
     Route: 042
     Dates: start: 20070904, end: 20070904

REACTIONS (3)
  - ARTERIOSPASM CORONARY [None]
  - ATRIOVENTRICULAR BLOCK [None]
  - SHOCK [None]
